FAERS Safety Report 8124307-X (Version None)
Quarter: 2012Q1

REPORT INFORMATION
  Report Type: 
  Country: None (occurrence: None)
  Receive Date: 20120209
  Receipt Date: 20120203
  Transmission Date: 20120608
  Serious: Yes (Other)
  Sender: FDA-Public Use
  Company Number: DE-B.I. PHARMACEUTICALS,INC./RIDGEFIELD-2012-EU-00753GD

PATIENT
  Age: 58 Year
  Sex: Male

DRUGS (11)
  1. ATORVASTATIN [Concomitant]
  2. ESOMEPRAZOLE [Concomitant]
  3. ALBUTEROL SULFATE AUTOHALER [Concomitant]
  4. FERROUS SULFATE TAB [Concomitant]
  5. AZD9668 [Suspect]
     Indication: CHRONIC OBSTRUCTIVE PULMONARY DISEASE
     Dosage: STRENGTHS: 2.5, 10 OR 30 MG
     Route: 048
  6. ASPIRIN [Concomitant]
  7. VENTOLIN [Suspect]
  8. HYDROCHLOROTHIAZIDE [Concomitant]
  9. TIOPRONIN [Suspect]
     Indication: CHRONIC OBSTRUCTIVE PULMONARY DISEASE
     Dosage: 18 MCG
     Route: 055
  10. FELODIPINE [Concomitant]
  11. IRBESARTAN [Concomitant]

REACTIONS (3)
  - GAMMA-GLUTAMYLTRANSFERASE INCREASED [None]
  - ASPARTATE AMINOTRANSFERASE INCREASED [None]
  - ALANINE AMINOTRANSFERASE INCREASED [None]
